FAERS Safety Report 4932779-4 (Version None)
Quarter: 2006Q1

REPORT INFORMATION
  Report Type: 
  Country: None (occurrence: None)
  Receive Date: 20060302
  Receipt Date: 20060302
  Transmission Date: 20060701
  Serious: No
  Sender: FDA-Public Use
  Company Number: None

PATIENT
  Age: 39 Year
  Sex: Female

DRUGS (7)
  1. EPINEPHRINE [Suspect]
     Indication: HAEMORRHAGE
     Dosage: 1 MG (1ML)
     Dates: start: 20051110
  2. EPINEPHRINE [Suspect]
     Indication: HAEMORRHAGE
     Dosage: 1 MG (1ML)
     Dates: start: 20051115
  3. LACTATED RINGER'S [Concomitant]
  4. LIDOCAINE [Concomitant]
  5. SOD BICARB [Concomitant]
  6. NS [Concomitant]
  7. LIDOCAINE [Concomitant]

REACTIONS (3)
  - DRUG INEFFECTIVE [None]
  - HAEMORRHAGE [None]
  - PHARMACEUTICAL PRODUCT COMPLAINT [None]
